FAERS Safety Report 14055738 (Version 1)
Quarter: 2017Q4

REPORT INFORMATION
  Report Type: Spontaneous
  Country: US (occurrence: US)
  Receive Date: 20171006
  Receipt Date: 20171006
  Transmission Date: 20180321
  Serious: No
  Sender: FDA-Public Use
  Company Number: US-TEVA-810709USA

PATIENT
  Age: 54 Year
  Sex: Female
  Weight: 48.12 kg

DRUGS (9)
  1. TACROLIMUS. [Concomitant]
     Active Substance: TACROLIMUS
  2. LORAZEPAM. [Concomitant]
     Active Substance: LORAZEPAM
  3. OLANZAPINE. [Concomitant]
     Active Substance: OLANZAPINE
  4. ACYCLOVIR. [Concomitant]
     Active Substance: ACYCLOVIR
  5. PRILOSEC [Concomitant]
     Active Substance: OMEPRAZOLE MAGNESIUM
  6. FLUCONAZOLE. [Concomitant]
     Active Substance: FLUCONAZOLE
  7. URSADIOL [Concomitant]
  8. SYNRIBO [Suspect]
     Active Substance: OMACETAXINE MEPESUCCINATE
     Indication: CHRONIC MYELOID LEUKAEMIA
     Dosage: TWICE A DAY FOR 3 DAYS OF A 28 DAY CYCLE
     Route: 058
     Dates: start: 20170729
  9. SULFAMETHOXAZOLE/TRIMETHOPRIM DS [Concomitant]
     Active Substance: SULFAMETHOXAZOLE\TRIMETHOPRIM

REACTIONS (2)
  - Blood count abnormal [Not Recovered/Not Resolved]
  - Platelet count decreased [Unknown]

NARRATIVE: CASE EVENT DATE: 20170921
